FAERS Safety Report 9988834 (Version 1)
Quarter: 2014Q1

REPORT INFORMATION
  Report Type: Spontaneous
  Country: US (occurrence: US)
  Receive Date: 20140310
  Receipt Date: 20140310
  Transmission Date: 20141002
  Serious: Yes (Other)
  Sender: FDA-Public Use
  Company Number: US-ELI_LILLY_AND_COMPANY-US201402009392

PATIENT
  Sex: Female

DRUGS (1)
  1. STRATTERA [Suspect]
     Indication: ATTENTION DEFICIT/HYPERACTIVITY DISORDER
     Dosage: 25 MG, QD
     Route: 048
     Dates: start: 20140224

REACTIONS (8)
  - Suicidal ideation [Recovering/Resolving]
  - Feeling abnormal [Recovering/Resolving]
  - Aggression [Recovering/Resolving]
  - Mood altered [Recovering/Resolving]
  - Fatigue [Recovering/Resolving]
  - Feeling cold [Recovering/Resolving]
  - Tremor [Recovering/Resolving]
  - Insomnia [Recovering/Resolving]
